FAERS Safety Report 4536519-2 (Version None)
Quarter: 2004Q4

REPORT INFORMATION
  Report Type: 
  Country: None (occurrence: None)
  Receive Date: 20041223
  Receipt Date: 20041214
  Transmission Date: 20050328
  Serious: Yes (Other)
  Sender: FDA-Public Use
  Company Number: FR-JNJFOC-20040909843

PATIENT
  Age: 35 Year
  Sex: Female
  Weight: 94 kg

DRUGS (11)
  1. REMICADE [Suspect]
     Dosage: 6TH INFUSION
     Route: 042
  2. REMICADE [Suspect]
     Indication: ANKYLOSING SPONDYLITIS
     Route: 042
  3. DOLIPRANE [Concomitant]
  4. NEXIUM [Concomitant]
  5. OROCAL D3 [Concomitant]
  6. OROCAL D3 [Concomitant]
  7. NEXEN [Concomitant]
  8. STILNOX [Concomitant]
  9. SINGULAIR [Concomitant]
  10. SURBRONC [Concomitant]
  11. RHINICORT [Concomitant]

REACTIONS (2)
  - DEMYELINATION [None]
  - HEMIPARESIS [None]
